FAERS Safety Report 6894003-5 (Version None)
Quarter: 2010Q3

REPORT INFORMATION
  Report Type: 
  Country: None (occurrence: None)
  Receive Date: 20100802
  Receipt Date: 20100722
  Transmission Date: 20110219
  Serious: Yes (Other)
  Sender: FDA-Public Use
  Company Number: US-RANBAXY-2010US-36162

PATIENT

DRUGS (6)
  1. CALAN [Suspect]
     Indication: ARRHYTHMIA
     Dosage: 240 MG, QD
     Route: 048
     Dates: start: 20080701
  2. GLIMEPIRIDE [Concomitant]
     Indication: PRODUCT USED FOR UNKNOWN INDICATION
     Dosage: 2 MG, QD (HALF TABLET)
     Route: 065
  3. LISINOPRIL [Concomitant]
     Indication: PRODUCT USED FOR UNKNOWN INDICATION
     Dosage: UNK
     Route: 065
  4. HYDROCHLOROTHIAZIDE [Concomitant]
     Indication: HYPERTENSION
     Dosage: 20 - 1.5MG, UNK
     Route: 065
  5. METFORMIN [Concomitant]
     Indication: PRODUCT USED FOR UNKNOWN INDICATION
     Dosage: 500 MG, BID
     Route: 048
  6. CRESTOR [Concomitant]
     Indication: BLOOD CHOLESTEROL ABNORMAL
     Dosage: 10 MG, UNK

REACTIONS (4)
  - ANAL CANCER [None]
  - BLOOD CHOLESTEROL INCREASED [None]
  - NEPHROLITHIASIS [None]
  - WHITE BLOOD CELL COUNT INCREASED [None]
